FAERS Safety Report 8156072-4 (Version None)
Quarter: 2012Q1

REPORT INFORMATION
  Report Type: 
  Country: None (occurrence: None)
  Receive Date: 20120222
  Receipt Date: 20120217
  Transmission Date: 20120608
  Serious: Yes (Hospitalization)
  Sender: FDA-Public Use
  Company Number: US-BAYER-2011-085672

PATIENT
  Age: 32 Year
  Sex: Female
  Weight: 47.166 kg

DRUGS (15)
  1. HUMIRA [Concomitant]
  2. IBUPROFEN TABLETS [Concomitant]
     Dosage: UNK UNK, PRN
  3. XANAX [Concomitant]
  4. YASMIN [Suspect]
     Dosage: UNK
     Dates: start: 20090701, end: 20090801
  5. PREDNISONE TAB [Concomitant]
  6. REMICADE [Concomitant]
  7. ALBUTEROL [Concomitant]
     Dosage: UNK UNK, PRN
  8. MULTI-VITAMIN [Concomitant]
  9. YASMIN [Suspect]
     Indication: CONTRACEPTION
     Dosage: UNK
     Dates: start: 20040101, end: 20090801
  10. CLINDAMYCIN [Concomitant]
  11. NALTREXONE HYDROCHLORIDE [Concomitant]
     Dosage: 4.5 MG, ONCE
     Route: 048
  12. FISH OIL [Concomitant]
     Dosage: UNK UNK, BID
  13. VITAMIN B-12 [Concomitant]
  14. CALCIUM WITH VITAMIN D [Concomitant]
  15. ASCORBIC ACID [Concomitant]
     Dosage: UNK UNK, PRN

REACTIONS (3)
  - INJURY [None]
  - DEEP VEIN THROMBOSIS [None]
  - PAIN [None]
